FAERS Safety Report 11357772 (Version 1)
Quarter: 2015Q3

REPORT INFORMATION
  Report Type: Spontaneous
  Country: US (occurrence: US)
  Receive Date: 20150803
  Receipt Date: 20150803
  Transmission Date: 20151125
  Serious: No
  Sender: FDA-Public Use
  Company Number: US-ELI_LILLY_AND_COMPANY-US201006004414

PATIENT
  Age: 16 Year
  Sex: Male

DRUGS (1)
  1. STRATTERA [Suspect]
     Active Substance: ATOMOXETINE HYDROCHLORIDE
     Indication: ATTENTION DEFICIT/HYPERACTIVITY DISORDER
     Dosage: 1.2 MG/KG, UNKNOWN
     Route: 065

REACTIONS (5)
  - Somnolence [Recovered/Resolved]
  - Flat affect [Recovered/Resolved]
  - Asthenia [Recovered/Resolved]
  - Personality disorder [Recovered/Resolved]
  - Disturbance in social behaviour [Recovered/Resolved]
